FAERS Safety Report 6019278-6 (Version None)
Quarter: 2008Q4

REPORT INFORMATION
  Report Type: 
  Country: None (occurrence: None)
  Receive Date: 20081224
  Receipt Date: 20081215
  Transmission Date: 20090506
  Serious: Yes (Hospitalization)
  Sender: FDA-Public Use
  Company Number: JP-ASTRAZENECA-2008AP09809

PATIENT
  Sex: Female

DRUGS (8)
  1. SEROQUEL [Suspect]
     Indication: BIPOLAR I DISORDER
     Route: 048
     Dates: start: 20060101
  2. GRAMALIL [Suspect]
  3. DEPAKENE [Suspect]
     Route: 048
  4. SOLANAX [Concomitant]
     Route: 048
  5. HALCION [Concomitant]
     Route: 048
  6. LORAMET [Concomitant]
     Route: 048
  7. FLUITRAN [Concomitant]
     Route: 048
  8. OMEPRAZOLE [Concomitant]
     Route: 048

REACTIONS (1)
  - OEDEMA [None]
